FAERS Safety Report 6996162-2 (Version None)
Quarter: 2010Q3

REPORT INFORMATION
  Report Type: 
  Country: None (occurrence: None)
  Receive Date: 20100918
  Receipt Date: 20090107
  Transmission Date: 20110219
  Serious: No
  Sender: FDA-Public Use
  Company Number: US-WYE-H07632009

PATIENT
  Sex: Female
  Weight: 52.66 kg

DRUGS (4)
  1. PREMPRO [Suspect]
     Indication: VULVOVAGINAL DRYNESS
     Dosage: 0.625MG/2.5 MG (FREQUENCY NOT SPECIFIED)
     Route: 048
     Dates: start: 20010101
  2. CALCIUM [Concomitant]
  3. ZOMIG [Concomitant]
  4. MULTI-VITAMINS [Concomitant]

REACTIONS (3)
  - DRUG INEFFECTIVE [None]
  - PRODUCT QUALITY ISSUE [None]
  - VULVOVAGINAL DISCOMFORT [None]
